FAERS Safety Report 6219326-4 (Version None)
Quarter: 2009Q2

REPORT INFORMATION
  Report Type: 
  Country: None (occurrence: None)
  Receive Date: 20090609
  Receipt Date: 20090602
  Transmission Date: 20091009
  Serious: Yes (Hospitalization)
  Sender: FDA-Public Use
  Company Number: BR-ASTRAZENECA-2009UW14127

PATIENT
  Age: 88 Year
  Sex: Female

DRUGS (7)
  1. SEROQUEL [Suspect]
     Indication: DEMENTIA ALZHEIMER'S TYPE
     Route: 048
  2. SEROQUEL [Suspect]
     Route: 048
  3. ALDACTONE [Concomitant]
     Indication: CARDIAC DISORDER
     Route: 048
  4. PANTOPRAZOLE SODIUM [Concomitant]
     Route: 048
  5. RIVOTRIL [Concomitant]
     Indication: SEDATION
     Route: 048
  6. LUFTAL [Concomitant]
     Route: 048
  7. TYLENOL (CAPLET) [Concomitant]
     Indication: HEADACHE
     Route: 048

REACTIONS (4)
  - NEPHROLITHIASIS [None]
  - NERVOUSNESS [None]
  - RENAL COLIC [None]
  - URINARY TRACT INFECTION [None]
